FAERS Safety Report 18375082 (Version 1)
Quarter: 2020Q4

REPORT INFORMATION
  Report Type: Spontaneous
  Country: US (occurrence: US)
  Receive Date: 20201004
  Receipt Date: 20201004
  Transmission Date: 20210114
  Serious: No
  Sender: FDA-Public Use
  Company Number: None

PATIENT
  Sex: Female

DRUGS (6)
  1. ARBIDOL [Suspect]
     Active Substance: UMIFENOVIR
     Route: 048
  2. RECOMBINANT HUMAN INTERFERON ALPHA 1B [Suspect]
     Active Substance: INTERFERON ALFA-1B
     Indication: COVID-19
     Route: 055
  3. HYDROXYCHLOROQUINE [Suspect]
     Active Substance: HYDROXYCHLOROQUINE
  4. QINGFEI PAIDU DECOCTION [Suspect]
     Active Substance: HERBALS
  5. LIANHUAQINGWEN [Suspect]
     Active Substance: HERBALS
     Route: 048
  6. LOPINAVIR [Suspect]
     Active Substance: LOPINAVIR
     Route: 048

REACTIONS (2)
  - Tonsillitis [None]
  - Off label use [None]
